FAERS Safety Report 10195618 (Version 3)
Quarter: 2016Q3

REPORT INFORMATION
  Report Type: Spontaneous
  Country: BR (occurrence: BR)
  Receive Date: 20140527
  Receipt Date: 20160726
  Transmission Date: 20161108
  Serious: Yes (Hospitalization)
  Sender: FDA-Public Use
  Company Number: BR-AMGEN INC.-BRASP2014032842

PATIENT
  Age: 9 Year
  Sex: Female
  Weight: 19 kg

DRUGS (9)
  1. FOLIC ACID. [Concomitant]
     Active Substance: FOLIC ACID
     Indication: MINERAL SUPPLEMENTATION
  2. FLANAX                             /00256202/ [Concomitant]
     Indication: ARTHRITIS
     Dosage: 2 TABLETS A DAY
     Dates: start: 2013
  3. OMEPRAZOLE. [Concomitant]
     Active Substance: OMEPRAZOLE
     Indication: ABDOMINAL DISCOMFORT
     Dosage: 1 TABLET IN THE MORNING
     Dates: start: 201401
  4. ENBREL [Suspect]
     Active Substance: ETANERCEPT
     Dosage: UNK
     Route: 065
  5. SULFASALAZINE. [Concomitant]
     Active Substance: SULFASALAZINE
     Indication: ARTHRITIS
     Dosage: 1 TABLET IN THE MORNING AND 1 TABLET IN THE AFTERNOON
     Dates: start: 2013
  6. METHOTREXATE. [Concomitant]
     Active Substance: METHOTREXATE
     Indication: ARTHRITIS
     Dosage: 4 TABLETS EVERY MONDAY
     Dates: start: 2013
  7. FOLIC ACID. [Concomitant]
     Active Substance: FOLIC ACID
     Indication: MINERAL SUPPLEMENTATION
     Dosage: 1 TABLET EVERY TUESDAY
     Dates: start: 2013
  8. ENBREL [Suspect]
     Active Substance: ETANERCEPT
     Indication: JUVENILE IDIOPATHIC ARTHRITIS
     Dosage: 25 MG, EVERY 15 DAYS
     Route: 065
     Dates: start: 20140430
  9. OMEPRAZOLE. [Concomitant]
     Active Substance: OMEPRAZOLE
     Indication: ABDOMINAL DISCOMFORT

REACTIONS (10)
  - Pyrexia [Unknown]
  - Anxiety [Unknown]
  - Injection site discolouration [Unknown]
  - Pallor [Unknown]
  - Injection site haemorrhage [Unknown]
  - Crying [Unknown]
  - Injection site pain [Unknown]
  - Pain in extremity [Not Recovered/Not Resolved]
  - Bone atrophy [Not Recovered/Not Resolved]
  - General physical condition abnormal [Unknown]

NARRATIVE: CASE EVENT DATE: 2014
